FAERS Safety Report 25616091 (Version 1)
Quarter: 2025Q3

REPORT INFORMATION
  Report Type: Spontaneous
  Country: GB (occurrence: GB)
  Receive Date: 20250729
  Receipt Date: 20250729
  Transmission Date: 20251020
  Serious: Yes (Death, Disabling, Other)
  Sender: ACCORD
  Company Number: None

PATIENT
  Age: 37 Year
  Sex: Female
  Weight: 61 kg

DRUGS (1)
  1. SERTRALINE [Suspect]
     Active Substance: SERTRALINE HYDROCHLORIDE
     Indication: Depression
     Dosage: STRENGTH: 100 MG
     Dates: start: 2011

REACTIONS (7)
  - Varicose vein [Unknown]
  - Concomitant disease aggravated [Unknown]
  - Hepatic cirrhosis [Unknown]
  - Ketoacidosis [Unknown]
  - Ascites [Unknown]
  - Drug-disease interaction [Unknown]
  - Toxicity to various agents [Fatal]
